FAERS Safety Report 7108938-1 (Version None)
Quarter: 2010Q4

REPORT INFORMATION
  Report Type: 
  Country: None (occurrence: None)
  Receive Date: 20101112
  Receipt Date: 20101026
  Transmission Date: 20110411
  Serious: Yes (Other)
  Sender: FDA-Public Use
  Company Number: 2010AP002288

PATIENT
  Age: 50 Year
  Sex: Male

DRUGS (3)
  1. RISPERIDONE [Suspect]
     Indication: SCHIZOPHRENIA
  2. PHENYLEPHRINE (PHENYLEPHRINE) [Concomitant]
  3. TROPICAMIDE [Concomitant]

REACTIONS (2)
  - FLOPPY IRIS SYNDROME [None]
  - PROCEDURAL COMPLICATION [None]
